FAERS Safety Report 18427103 (Version 1)
Quarter: 2020Q4

REPORT INFORMATION
  Report Type: Spontaneous
  Country: US (occurrence: US)
  Receive Date: 20201026
  Receipt Date: 20201026
  Transmission Date: 20210114
  Serious: Yes (Disabling)
  Sender: FDA-Public Use
  Company Number: None

PATIENT
  Age: 27 Year
  Sex: Female
  Weight: 60.75 kg

DRUGS (3)
  1. FLUOXETINE [Suspect]
     Active Substance: FLUOXETINE HYDROCHLORIDE
     Indication: DEPRESSION
     Dosage: ?          QUANTITY:9 CAPSULE(S);?
     Route: 048
     Dates: start: 20200917, end: 20200927
  2. GENERIC LEXAPRO [Concomitant]
     Active Substance: ESCITALOPRAM OXALATE
  3. FLUOXETINE [Suspect]
     Active Substance: FLUOXETINE HYDROCHLORIDE
     Indication: OBSESSIVE-COMPULSIVE DISORDER
     Dosage: ?          QUANTITY:9 CAPSULE(S);?
     Route: 048
     Dates: start: 20200917, end: 20200927

REACTIONS (4)
  - Sexual dysfunction [None]
  - Hypoaesthesia [None]
  - Female orgasmic disorder [None]
  - Loss of libido [None]

NARRATIVE: CASE EVENT DATE: 20200928
